FAERS Safety Report 15839805 (Version 5)
Quarter: 2020Q1

REPORT INFORMATION
  Report Type: Spontaneous
  Country: US (occurrence: US)
  Receive Date: 20190117
  Receipt Date: 20200302
  Transmission Date: 20200409
  Serious: Yes (Other)
  Sender: FDA-Public Use
  Company Number: US-PFIZER INC-2019019963

PATIENT
  Age: 75 Year
  Sex: Female
  Weight: 68.95 kg

DRUGS (2)
  1. GENOTROPIN MQ [Suspect]
     Active Substance: SOMATROPIN
     Indication: HYPOPITUITARISM
     Dosage: 0.6 MG, FOUR TIMES A WEEK
  2. L-ARGININE [Concomitant]
     Active Substance: ARGININE
     Indication: ANGIOPATHY
     Dosage: 1000 MG, 3X/DAY
     Dates: start: 20190109

REACTIONS (7)
  - Epilepsy [Unknown]
  - Presyncope [Recovered/Resolved]
  - Poor quality device used [Unknown]
  - Device use issue [Unknown]
  - Palpitations [Recovered/Resolved]
  - Feeling abnormal [Recovered/Resolved]
  - Dizziness [Recovered/Resolved]

NARRATIVE: CASE EVENT DATE: 20190110
